FAERS Safety Report 6803330-9 (Version None)
Quarter: 2010Q2

REPORT INFORMATION
  Report Type: 
  Country: None (occurrence: None)
  Receive Date: 20100628
  Receipt Date: 20100617
  Transmission Date: 20101027
  Serious: Yes (Hospitalization)
  Sender: FDA-Public Use
  Company Number: CO-ROCHE-709898

PATIENT
  Sex: Female

DRUGS (5)
  1. CELLCEPT [Suspect]
     Dosage: FREQUENCY: 1000 MG QD
     Route: 048
     Dates: start: 20090109, end: 20100603
  2. OMEPRAZOLE [Concomitant]
     Dosage: FREQUENCY:20 MG QD
     Route: 048
  3. CALCITRIOL [Concomitant]
     Dosage: FREQUENCY:0.25 MCG
     Route: 048
  4. CALCIUM CARBONATE [Concomitant]
     Dosage: FREQUENCY: 600 MG QD
     Route: 048
  5. FOLIC ACID [Concomitant]
     Dosage: FREQUENCY:5 MG QD
     Route: 048

REACTIONS (1)
  - TRANSPLANT REJECTION [None]
